FAERS Safety Report 7400506-7 (Version None)
Quarter: 2011Q1

REPORT INFORMATION
  Report Type: 
  Country: None (occurrence: None)
  Receive Date: 20110329
  Receipt Date: 20110315
  Transmission Date: 20110831
  Serious: Yes (Hospitalization)
  Sender: FDA-Public Use
  Company Number: 029528

PATIENT
  Sex: Female
  Weight: 73 kg

DRUGS (13)
  1. CIMZIA [Suspect]
     Indication: CROHN'S DISEASE
     Dosage: (400 MG1X/2 WEEKS SUBCUTANEOUS), (400 MG 1X/MONTH SUBCUTANEOUS), (SUBCUTANEOUS)
     Route: 058
     Dates: start: 20091109, end: 20100104
  2. CIMZIA [Suspect]
     Indication: CROHN'S DISEASE
     Dosage: (400 MG1X/2 WEEKS SUBCUTANEOUS), (400 MG 1X/MONTH SUBCUTANEOUS), (SUBCUTANEOUS)
     Route: 058
     Dates: start: 20100604
  3. CIMZIA [Suspect]
     Indication: CROHN'S DISEASE
     Dosage: (400 MG1X/2 WEEKS SUBCUTANEOUS), (400 MG 1X/MONTH SUBCUTANEOUS), (SUBCUTANEOUS)
     Route: 058
     Dates: start: 20100419, end: 20100419
  4. CIMZIA [Suspect]
     Indication: CROHN'S DISEASE
     Dosage: (400 MG1X/2 WEEKS SUBCUTANEOUS), (400 MG 1X/MONTH SUBCUTANEOUS), (SUBCUTANEOUS)
     Route: 058
     Dates: start: 20100201, end: 20100303
  5. LOPERAMIDE [Concomitant]
  6. IBUPROFEN [Concomitant]
  7. ALBUTEROL [Concomitant]
  8. METHOTREXATE [Concomitant]
  9. ALLEGRA [Concomitant]
  10. ACETAMINOPHEN [Concomitant]
  11. BENADRYL [Concomitant]
  12. AMITRIPTYLINE [Concomitant]
  13. ACTIVASE [Concomitant]

REACTIONS (4)
  - PYREXIA [None]
  - WHITE BLOOD CELL COUNT INCREASED [None]
  - INFLUENZA VIRUS TEST POSITIVE [None]
  - HEADACHE [None]
